FAERS Safety Report 6859573-1 (Version None)
Quarter: 2010Q3

REPORT INFORMATION
  Report Type: 
  Country: None (occurrence: None)
  Receive Date: 20100719
  Receipt Date: 20080229
  Transmission Date: 20110219
  Serious: No
  Sender: FDA-Public Use
  Company Number: US-PFIZER INC-2008019337

PATIENT
  Sex: Female
  Weight: 62.4 kg

DRUGS (2)
  1. CHANTIX [Suspect]
     Indication: SMOKING CESSATION THERAPY
     Dates: start: 20071022
  2. SYNTHROID [Concomitant]
     Indication: THYROID DISORDER

REACTIONS (2)
  - ABNORMAL DREAMS [None]
  - NAUSEA [None]
